FAERS Safety Report 9390465 (Version 2)
Quarter: 2014Q2

REPORT INFORMATION
  Report Type: Spontaneous
  Country: JP (occurrence: JP)
  Receive Date: 20130709
  Receipt Date: 20140404
  Transmission Date: 20141212
  Serious: Yes (Disabling, Other)
  Sender: FDA-Public Use
  Company Number: JP-AMGEN-JPNSP2013047131

PATIENT
  Age: 63 Year
  Sex: Male
  Weight: 50 kg

DRUGS (2)
  1. RANMARK [Suspect]
     Indication: PROSTATE CANCER
     Dosage: 120 MG, QD
     Route: 058
     Dates: start: 20130605
  2. CALCICOL [Concomitant]
     Dosage: 8.5 %, UNK
     Route: 065

REACTIONS (1)
  - Hypocalcaemia [Recovered/Resolved]
